FAERS Safety Report 18968015 (Version 1)
Quarter: 2021Q1

REPORT INFORMATION
  Report Type: Spontaneous
  Country: CA (occurrence: CA)
  Receive Date: 20210304
  Receipt Date: 20210304
  Transmission Date: 20210420
  Serious: Yes (Hospitalization, Other)
  Sender: FDA-Public Use
  Company Number: CA-UNICHEM PHARMACEUTICALS (USA) INC-UCM202102-000200

PATIENT
  Sex: Male

DRUGS (2)
  1. BETAMETHASONE VALERATE. [Concomitant]
     Active Substance: BETAMETHASONE VALERATE
     Indication: PRURITUS
     Dosage: TOPICAL 0.05% BETAMETHASONE VALERATE CREAM TWO TIMES PER DAY AS NEEDED.
     Route: 061
  2. CETIRIZINE, HCL [Suspect]
     Active Substance: CETIRIZINE HYDROCHLORIDE
     Indication: PRURITUS

REACTIONS (1)
  - Psychotic disorder [Recovered/Resolved]
